FAERS Safety Report 15933891 (Version 1)
Quarter: 2019Q1

REPORT INFORMATION
  Report Type: Spontaneous
  Country: FR (occurrence: FR)
  Receive Date: 20190207
  Receipt Date: 20190207
  Transmission Date: 20190417
  Serious: Yes (Congenital Anomaly, Other)
  Sender: FDA-Public Use
  Company Number: FR-ABBVIE-01P-056-0113702-00

PATIENT
  Age: 4 Year
  Sex: Female
  Weight: 3.19 kg

DRUGS (1)
  1. DEPAKINE [Suspect]
     Active Substance: VALPROATE SODIUM
     Indication: MATERNAL EXPOSURE TIMING UNSPECIFIED
     Route: 064
     Dates: start: 19951218, end: 19961223

REACTIONS (30)
  - Dysmorphism [Unknown]
  - Nipple disorder [Unknown]
  - Coordination abnormal [Unknown]
  - Educational problem [Unknown]
  - Cognitive disorder [Unknown]
  - Speech disorder developmental [Not Recovered/Not Resolved]
  - Streptococcus test positive [Unknown]
  - Foetal exposure during pregnancy [Recovered/Resolved]
  - Haemangioma [Unknown]
  - Aphasia [Unknown]
  - Hypotonia [Unknown]
  - Memory impairment [Unknown]
  - Weight gain poor [Not Recovered/Not Resolved]
  - Feeding disorder [Unknown]
  - Haemophilus test positive [Unknown]
  - Injury [Unknown]
  - Aspiration [Unknown]
  - Spina bifida occulta [Not Recovered/Not Resolved]
  - Bone deformity [Unknown]
  - Developmental delay [Not Recovered/Not Resolved]
  - Gait disturbance [Not Recovered/Not Resolved]
  - Visual impairment [Unknown]
  - Neonatal infection [Unknown]
  - Gastrooesophageal reflux disease [Unknown]
  - Intelligence test abnormal [Unknown]
  - Speech disorder developmental [Unknown]
  - Foot deformity [Unknown]
  - Disturbance in social behaviour [Unknown]
  - Antisocial behaviour [Unknown]
  - Tonsillar ulcer [Unknown]

NARRATIVE: CASE EVENT DATE: 19951218
